FAERS Safety Report 4351418-7 (Version None)
Quarter: 2004Q2

REPORT INFORMATION
  Report Type: 
  Country: None (occurrence: None)
  Receive Date: 20040428
  Receipt Date: 20040412
  Transmission Date: 20050107
  Serious: Yes (Other)
  Sender: FDA-Public Use
  Company Number: USA040464643

PATIENT
  Age: 25 Year
  Sex: Female
  Weight: 68 kg

DRUGS (3)
  1. STRATTERA [Suspect]
     Indication: ATTENTION DEFICIT/HYPERACTIVITY DISORDER
     Dosage: 25 MG
  2. KLONOPIN [Concomitant]
  3. EFFEXOR XR [Concomitant]

REACTIONS (3)
  - IMPULSIVE BEHAVIOUR [None]
  - LOSS OF CONSCIOUSNESS [None]
  - MEDICATION ERROR [None]
